FAERS Safety Report 15840595 (Version 3)
Quarter: 2020Q3

REPORT INFORMATION
  Report Type: Spontaneous
  Country: CN (occurrence: CN)
  Receive Date: 20190118
  Receipt Date: 20190606
  Transmission Date: 20201104
  Serious: Yes (Other)
  Sender: FDA-Public Use
  Company Number: CN-ROCHE-2239608

PATIENT
  Age: 56 Year
  Sex: Female

DRUGS (18)
  1. ALECTINIB. [Suspect]
     Active Substance: ALECTINIB
     Indication: LUNG ADENOCARCINOMA
     Route: 065
  2. CARBOPLATIN. [Concomitant]
     Active Substance: CARBOPLATIN
     Indication: METASTASES TO LUNG
  3. DOCETAXEL. [Concomitant]
     Active Substance: DOCETAXEL
     Indication: METASTASES TO LUNG
  4. ALECTINIB. [Suspect]
     Active Substance: ALECTINIB
     Indication: METASTASES TO LUNG
  5. PACLITAXEL. [Concomitant]
     Active Substance: PACLITAXEL
     Indication: METASTASES TO LUNG
  6. DOCETAXEL. [Concomitant]
     Active Substance: DOCETAXEL
     Indication: LUNG ADENOCARCINOMA
     Dosage: 2 CYCLES
     Route: 065
  7. DOCETAXEL. [Concomitant]
     Active Substance: DOCETAXEL
     Indication: METASTASES TO PLEURA
  8. CRIZOTINIB [Concomitant]
     Active Substance: CRIZOTINIB
     Indication: LUNG ADENOCARCINOMA
     Dosage: 4 WEEKS
     Route: 065
  9. CRIZOTINIB [Concomitant]
     Active Substance: CRIZOTINIB
     Indication: METASTASES TO LUNG
  10. BEVACIZUMAB. [Suspect]
     Active Substance: BEVACIZUMAB
     Indication: LUNG ADENOCARCINOMA
     Route: 065
  11. CARBOPLATIN. [Concomitant]
     Active Substance: CARBOPLATIN
     Indication: LUNG ADENOCARCINOMA
  12. BEVACIZUMAB. [Suspect]
     Active Substance: BEVACIZUMAB
     Indication: METASTASES TO PLEURA
  13. BEVACIZUMAB. [Suspect]
     Active Substance: BEVACIZUMAB
     Indication: METASTASES TO LUNG
  14. ALECTINIB. [Suspect]
     Active Substance: ALECTINIB
     Indication: METASTASES TO PLEURA
  15. CARBOPLATIN. [Concomitant]
     Active Substance: CARBOPLATIN
     Indication: METASTASES TO PLEURA
  16. CRIZOTINIB [Concomitant]
     Active Substance: CRIZOTINIB
     Indication: METASTASES TO PLEURA
  17. PACLITAXEL. [Concomitant]
     Active Substance: PACLITAXEL
     Indication: LUNG ADENOCARCINOMA
  18. PACLITAXEL. [Concomitant]
     Active Substance: PACLITAXEL
     Indication: METASTASES TO PLEURA

REACTIONS (3)
  - Hepatic function abnormal [Unknown]
  - Pleural effusion [Unknown]
  - Blood creatine phosphokinase increased [Unknown]
